FAERS Safety Report 7380539-X (Version None)
Quarter: 2011Q1

REPORT INFORMATION
  Report Type: 
  Country: None (occurrence: None)
  Receive Date: 20110329
  Receipt Date: 20110321
  Transmission Date: 20110831
  Serious: Yes (Hospitalization, Other)
  Sender: FDA-Public Use
  Company Number: ZA-ABBOTT-11P-143-0713519-00

PATIENT
  Age: 27 Year
  Sex: Male

DRUGS (3)
  1. LAMICTAL [Concomitant]
     Indication: PRODUCT USED FOR UNKNOWN INDICATION
  2. EPILIM [Suspect]
     Indication: EPILEPSY
     Dosage: 1300 MG DAILY
     Route: 048
  3. EPILIM CR [Suspect]
     Indication: GRAND MAL CONVULSION
     Dosage: 1300 MG DAILY; 800 MG, AT BEDTIME
     Route: 048

REACTIONS (7)
  - PRODUCT SUBSTITUTION ISSUE [None]
  - PRODUCT QUALITY ISSUE [None]
  - CONVULSION [None]
  - GRAND MAL CONVULSION [None]
  - FATIGUE [None]
  - INCORRECT DRUG DOSAGE FORM ADMINISTERED [None]
  - POSTICTAL STATE [None]
